FAERS Safety Report 5719475-0 (Version None)
Quarter: 2008Q2

REPORT INFORMATION
  Report Type: 
  Country: None (occurrence: None)
  Receive Date: 20080428
  Receipt Date: 20080415
  Transmission Date: 20081010
  Serious: Yes (Hospitalization, Other)
  Sender: FDA-Public Use
  Company Number: US-AMGEN-QUU274805

PATIENT
  Sex: Female

DRUGS (2)
  1. ENBREL [Suspect]
     Indication: RHEUMATOID ARTHRITIS
     Route: 058
     Dates: start: 20040301
  2. PLAQUENIL [Concomitant]
     Dates: start: 19940101

REACTIONS (4)
  - ARTHRITIS [None]
  - CHOLELITHIASIS [None]
  - EYELID PTOSIS [None]
  - LABORATORY TEST ABNORMAL [None]
